FAERS Safety Report 14679596 (Version 1)
Quarter: 2018Q1

REPORT INFORMATION
  Report Type: Spontaneous
  Country: US (occurrence: US)
  Receive Date: 20180324
  Receipt Date: 20180324
  Transmission Date: 20180509
  Serious: Yes (Disabling)
  Sender: FDA-Public Use
  Company Number: None

PATIENT
  Age: 33 Year
  Sex: Female
  Weight: 62.14 kg

DRUGS (12)
  1. VISTARIL [Concomitant]
     Active Substance: HYDROXYZINE PAMOATE
  2. LAMICTAL [Concomitant]
     Active Substance: LAMOTRIGINE
  3. NORCO [Concomitant]
     Active Substance: ACETAMINOPHEN\HYDROCODONE BITARTRATE
  4. FLEXERIL [Concomitant]
     Active Substance: CYCLOBENZAPRINE HYDROCHLORIDE
  5. PROAIR HFA [Concomitant]
     Active Substance: ALBUTEROL SULFATE
  6. MIRENA [Suspect]
     Active Substance: LEVONORGESTREL
  7. TOPAMAX [Concomitant]
     Active Substance: TOPIRAMATE
  8. NEURONTIN [Concomitant]
     Active Substance: GABAPENTIN
  9. DUONEB [Concomitant]
     Active Substance: ALBUTEROL SULFATE\IPRATROPIUM BROMIDE
  10. MELIXCAM [Concomitant]
  11. ALPRAZOLAM. [Concomitant]
     Active Substance: ALPRAZOLAM
  12. CYMBALTA [Concomitant]
     Active Substance: DULOXETINE HYDROCHLORIDE

REACTIONS (10)
  - Migraine [None]
  - Bedridden [None]
  - Neck pain [None]
  - Tinnitus [None]
  - Visual impairment [None]
  - Vomiting [None]
  - Head discomfort [None]
  - Nausea [None]
  - Headache [None]
  - Parosmia [None]

NARRATIVE: CASE EVENT DATE: 20160630
